FAERS Safety Report 7341613-7 (Version None)
Quarter: 2011Q1

REPORT INFORMATION
  Report Type: 
  Country: None (occurrence: None)
  Receive Date: 20110228
  Receipt Date: 20110218
  Transmission Date: 20110831
  Serious: Yes (Hospitalization, Other)
  Sender: FDA-Public Use
  Company Number: GER/UKI/11/0017465

PATIENT
  Age: 24 Year
  Sex: Male

DRUGS (8)
  1. FLUOXETINE [Suspect]
     Indication: ANXIETY
     Dosage: 20 MG, ORAL
     Route: 048
     Dates: start: 20101231, end: 20110127
  2. FLUOXETINE [Suspect]
     Indication: OBSESSIVE-COMPULSIVE DISORDER
     Dosage: 20 MG, ORAL
     Route: 048
     Dates: start: 20101231, end: 20110127
  3. CITALOPRAM (CITALOPRAM) [Suspect]
     Indication: OBSESSIVE-COMPULSIVE DISORDER
     Dosage: 20 MG, ORAL
     Route: 048
     Dates: start: 20110128, end: 20110208
  4. CITALOPRAM (CITALOPRAM) [Suspect]
     Indication: ANXIETY
     Dosage: 20 MG, ORAL
     Route: 048
     Dates: start: 20110128, end: 20110208
  5. AMOXICILLIN [Concomitant]
  6. OMEPRAZOLE [Concomitant]
  7. SERETIDE (SERETIDE /01420901/) [Concomitant]
  8. DICLOFENAC (DICLOFENAC) [Concomitant]

REACTIONS (4)
  - SEROTONIN SYNDROME [None]
  - HEADACHE [None]
  - FEELING OF BODY TEMPERATURE CHANGE [None]
  - DRUG INTERACTION [None]
